FAERS Safety Report 4678273-X (Version None)
Quarter: 2005Q2

REPORT INFORMATION
  Report Type: 
  Country: None (occurrence: None)
  Receive Date: 20050527
  Receipt Date: 20050520
  Transmission Date: 20051028
  Serious: Yes (Hospitalization, Other)
  Sender: FDA-Public Use
  Company Number: KII-2005-0016729

PATIENT
  Age: 21 Year
  Sex: Female

DRUGS (7)
  1. OXYCONTIN TABLETS (OXYODONE HYDROCHLORIDE) CR TABLET [Suspect]
     Dosage: ORAL
     Route: 048
  2. HYDROMORPHONE HCL [Suspect]
     Dosage: ORAL
     Route: 048
  3. GAMMA HYDROXYBUTYRATE AND  ANALOG [Suspect]
     Dosage: ORAL
     Route: 048
  4. BARBITURATES [Suspect]
  5. BENDZODIAZEPINE DERIVATIVES [Suspect]
  6. MARIJUANA (CANNABIS) [Suspect]
  7. COCAINE (COCAINE) [Suspect]

REACTIONS (3)
  - LOSS OF CONSCIOUSNESS [None]
  - MULTIPLE DRUG OVERDOSE [None]
  - POLYSUBSTANCE ABUSE [None]
